FAERS Safety Report 5336101-3 (Version None)
Quarter: 2007Q1

REPORT INFORMATION
  Report Type: 
  Country: None (occurrence: None)
  Receive Date: 20070302
  Receipt Date: 20061115
  Transmission Date: 20070707
  Serious: No
  Sender: FDA-Public Use
  Company Number: PHEH2006US14312

PATIENT
  Age: 87 Year
  Sex: Female

DRUGS (5)
  1. ENABLEX [Suspect]
     Indication: HYPERTONIC BLADDER
     Dosage: 7.5 MG, QD
     Dates: start: 20061101
  2. LORAZEPAM [Concomitant]
  3. EFFEXOR [Concomitant]
  4. GABAPENTIN [Concomitant]
  5. LEXAPRO [Concomitant]

REACTIONS (2)
  - RESPIRATORY RATE INCREASED [None]
  - TREMOR [None]
